FAERS Safety Report 6323060-X (Version None)
Quarter: 2009Q3

REPORT INFORMATION
  Report Type: 
  Country: None (occurrence: None)
  Receive Date: 20090818
  Receipt Date: 20090428
  Transmission Date: 20100115
  Serious: Yes (Hospitalization)
  Sender: FDA-Public Use
  Company Number: MEDI-0007810

PATIENT
  Age: 5 Month
  Sex: Male
  Weight: 6.3504 kg

DRUGS (1)
  1. SYNAGIS [Suspect]
     Dosage: INTRAMUSCULAR
     Route: 030
     Dates: start: 20090102, end: 20090102

REACTIONS (2)
  - HYPOXIA [None]
  - RESPIRATORY SYNCYTIAL VIRUS BRONCHIOLITIS [None]
